FAERS Safety Report 6538746-1 (Version None)
Quarter: 2010Q1

REPORT INFORMATION
  Report Type: 
  Country: None (occurrence: None)
  Receive Date: 20100115
  Receipt Date: 20100104
  Transmission Date: 20100710
  Serious: Yes (Other)
  Sender: FDA-Public Use
  Company Number: GB-ELI_LILLY_AND_COMPANY-GB201001000264

PATIENT
  Age: 42 Year
  Sex: Male

DRUGS (3)
  1. HUMALOG MIX 75/25 [Suspect]
     Indication: DIABETES MELLITUS
     Route: 058
     Dates: start: 20050923
  2. EXUBERA [Concomitant]
     Indication: TYPE 2 DIABETES MELLITUS
     Dosage: 4 MG, DAILY (1/D)
     Route: 055
     Dates: start: 20070112, end: 20070313
  3. INSULIN HUMAN [Concomitant]
     Dosage: 4 D/F, DAILY (1/D)

REACTIONS (8)
  - CHEST PAIN [None]
  - COUGH [None]
  - DYSGEUSIA [None]
  - DYSPNOEA [None]
  - FEELING ABNORMAL [None]
  - HAEMOPTYSIS [None]
  - HAEMORRHAGE [None]
  - PRODUCTIVE COUGH [None]
